FAERS Safety Report 23437468 (Version 9)
Quarter: 2024Q4

REPORT INFORMATION
  Report Type: Report from Study
  Country: US (occurrence: US)
  Receive Date: 20240124
  Receipt Date: 20241104
  Transmission Date: 20250115
  Serious: Yes (Other)
  Sender: TAKEDA
  Company Number: US-TAKEDA-2024TUS004516

PATIENT
  Age: 25 Year
  Sex: Male

DRUGS (1)
  1. VEDOLIZUMAB [Suspect]
     Active Substance: VEDOLIZUMAB
     Indication: Crohn^s disease
     Dosage: 300 MILLIGRAM
     Route: 042

REACTIONS (29)
  - Gastric haemorrhage [Unknown]
  - Crohn^s disease [Not Recovered/Not Resolved]
  - Road traffic accident [Unknown]
  - Contusion [Not Recovered/Not Resolved]
  - Skin abrasion [Not Recovered/Not Resolved]
  - Diarrhoea [Recovered/Resolved]
  - Joint swelling [Unknown]
  - Stress [Unknown]
  - Decreased immune responsiveness [Unknown]
  - Product dose omission issue [Unknown]
  - Inappropriate schedule of product administration [Not Recovered/Not Resolved]
  - Panic attack [Not Recovered/Not Resolved]
  - Bladder pain [Not Recovered/Not Resolved]
  - Anxiety [Not Recovered/Not Resolved]
  - Brain fog [Unknown]
  - Slow speech [Unknown]
  - Pain [Not Recovered/Not Resolved]
  - Rectal discharge [Not Recovered/Not Resolved]
  - Drug ineffective [Not Recovered/Not Resolved]
  - Remission not achieved [Not Recovered/Not Resolved]
  - Abdominal pain upper [Not Recovered/Not Resolved]
  - Chest pain [Not Recovered/Not Resolved]
  - Palpitations [Not Recovered/Not Resolved]
  - Abdominal pain [Not Recovered/Not Resolved]
  - Back pain [Unknown]
  - Arthralgia [Not Recovered/Not Resolved]
  - Rash [Not Recovered/Not Resolved]
  - Pruritus [Not Recovered/Not Resolved]
  - Oropharyngeal pain [Not Recovered/Not Resolved]

NARRATIVE: CASE EVENT DATE: 20240722
